FAERS Safety Report 14230730 (Version 2)
Quarter: 2018Q1

REPORT INFORMATION
  Report Type: Spontaneous
  Country: US (occurrence: US)
  Receive Date: 20171128
  Receipt Date: 20180104
  Transmission Date: 20180508
  Serious: Yes (Other)
  Sender: FDA-Public Use
  Company Number: US-AKORN PHARMACEUTICALS-2017AKN01349

PATIENT
  Sex: Male
  Weight: 74.83 kg

DRUGS (2)
  1. MYORISAN [Suspect]
     Active Substance: ISOTRETINOIN
     Indication: ACNE
     Dosage: 30 MG, 1X/DAY IN THE PM
     Dates: start: 20171018, end: 20171113
  2. MYORISAN [Suspect]
     Active Substance: ISOTRETINOIN
     Indication: ACNE
     Dosage: 40 MG, 1X/DAY IN THE AM
     Dates: start: 20171018, end: 20171113

REACTIONS (5)
  - Erectile dysfunction [Unknown]
  - Depression [Unknown]
  - Chest pain [Unknown]
  - Decreased appetite [Unknown]
  - Crying [Unknown]

NARRATIVE: CASE EVENT DATE: 2017
